FAERS Safety Report 6314823-5 (Version None)
Quarter: 2009Q3

REPORT INFORMATION
  Report Type: 
  Country: None (occurrence: None)
  Receive Date: 20090817
  Receipt Date: 20090731
  Transmission Date: 20100115
  Serious: Yes (Disabling)
  Sender: FDA-Public Use
  Company Number: 1-19365457

PATIENT
  Age: 78 Year
  Sex: Female

DRUGS (3)
  1. WARFARIN SODIUM [Suspect]
     Indication: ATRIAL FIBRILLATION
     Dosage: ORAL
     Route: 048
  2. VISUDYNE [Suspect]
     Indication: PHOTODYNAMIC THERAPY
     Dosage: INTRAVENOUS
     Route: 042
  3. DIGOXIN [Concomitant]

REACTIONS (19)
  - CHOROIDAL NEOVASCULARISATION [None]
  - CONJUNCTIVAL HYPERAEMIA [None]
  - CORNEAL DISORDER [None]
  - EPISTAXIS [None]
  - EYE HAEMORRHAGE [None]
  - EYE PAIN [None]
  - FLAT ANTERIOR CHAMBER OF EYE [None]
  - GENERAL PHYSICAL CONDITION ABNORMAL [None]
  - HAEMORRHAGIC CEREBRAL INFARCTION [None]
  - INTERNATIONAL NORMALISED RATIO INCREASED [None]
  - MACULAR DEGENERATION [None]
  - MACULAR SCAR [None]
  - MACULOPATHY [None]
  - METAMORPHOPSIA [None]
  - PUPIL FIXED [None]
  - RETINAL HAEMORRHAGE [None]
  - SOMNOLENCE [None]
  - SPEECH DISORDER [None]
  - VISUAL ACUITY REDUCED [None]
